FAERS Safety Report 6567087-1 (Version None)
Quarter: 2010Q1

REPORT INFORMATION
  Report Type: 
  Country: None (occurrence: None)
  Receive Date: 20100202
  Receipt Date: 20100122
  Transmission Date: 20100710
  Serious: Yes (Life-Threatening, Hospitalization)
  Sender: FDA-Public Use
  Company Number: GB-WYE-H09603309

PATIENT
  Age: 44 Year
  Sex: Female

DRUGS (16)
  1. AMIODARONE HCL [Suspect]
     Indication: VENTRICULAR FIBRILLATION
     Dosage: UNKNOWN
  2. SOTALOL [Suspect]
     Indication: SUPRAVENTRICULAR TACHYCARDIA
     Route: 065
  3. ALFACALCIDOL [Concomitant]
     Indication: DRUG USE FOR UNKNOWN INDICATION
     Route: 065
  4. ALFENTANIL [Concomitant]
     Indication: ANAESTHESIA
     Dosage: 1MG
     Route: 065
  5. ACETYLSALICYLIC ACID [Concomitant]
     Indication: DRUG USE FOR UNKNOWN INDICATION
     Route: 065
  6. ATRACURIUM [Concomitant]
     Indication: ANAESTHESIA
     Dosage: 50MG
     Route: 065
  7. DOMPERIDONE [Concomitant]
     Indication: DRUG USE FOR UNKNOWN INDICATION
     Route: 065
  8. DOXAZOSIN MESYLATE [Concomitant]
     Indication: DRUG USE FOR UNKNOWN INDICATION
     Route: 065
  9. FUROSEMIDE [Concomitant]
     Indication: DRUG USE FOR UNKNOWN INDICATION
     Route: 065
  10. MIDAZOLAM HCL [Concomitant]
     Indication: ANXIETY
     Dosage: 4MG
     Route: 065
  11. NITROFURANTOIN [Concomitant]
     Indication: DRUG USE FOR UNKNOWN INDICATION
     Route: 065
  12. PROPOFOL [Concomitant]
     Indication: DRUG USE FOR UNKNOWN INDICATION
  13. RABEPRAZOLE SODIUM [Concomitant]
     Indication: ANAESTHESIA
     Route: 065
  14. SIMVASTATIN [Concomitant]
     Indication: DRUG USE FOR UNKNOWN INDICATION
     Route: 065
  15. SODIUM BICARBONATE [Concomitant]
     Indication: DRUG USE FOR UNKNOWN INDICATION
     Route: 065
  16. ISOFLURANE [Concomitant]
     Indication: ANAESTHESIA
     Dosage: UNKNOWN
     Route: 065

REACTIONS (3)
  - BRADYCARDIA [None]
  - ELECTROCARDIOGRAM QT PROLONGED [None]
  - HYPOKALAEMIA [None]
